FAERS Safety Report 8157585-1 (Version None)
Quarter: 2012Q1

REPORT INFORMATION
  Report Type: 
  Country: None (occurrence: None)
  Receive Date: 20120222
  Receipt Date: 20110525
  Transmission Date: 20120608
  Serious: No
  Sender: FDA-Public Use
  Company Number: US-ASTRAZENECA-2011SE09555

PATIENT
  Age: 71 Year
  Sex: Female

DRUGS (5)
  1. TENORMIN [Suspect]
     Route: 048
     Dates: start: 20110201
  2. ALDACTAZIDE [Concomitant]
  3. MULTI-VITAMINS [Concomitant]
  4. ALTACE [Concomitant]
  5. TENORMIN [Suspect]
     Indication: HYPERTENSION
     Route: 048
     Dates: start: 20070101

REACTIONS (5)
  - COELIAC DISEASE [None]
  - BLOOD PRESSURE INCREASED [None]
  - DRUG PRESCRIBING ERROR [None]
  - CARDIAC DISORDER [None]
  - DIARRHOEA [None]
